FAERS Safety Report 5806008-3 (Version None)
Quarter: 2008Q3

REPORT INFORMATION
  Report Type: 
  Country: None (occurrence: None)
  Receive Date: 20080710
  Receipt Date: 20080708
  Transmission Date: 20090109
  Serious: Yes (Other)
  Sender: FDA-Public Use
  Company Number: B0528222A

PATIENT
  Age: 67 Year
  Sex: Female

DRUGS (5)
  1. REQUIP [Suspect]
     Indication: PARKINSON'S DISEASE
     Dosage: 6MG FOUR TIMES PER DAY
     Route: 048
     Dates: start: 20070411
  2. COMTAN [Concomitant]
     Route: 048
  3. CARBIDOPA AND LEVODOPA [Concomitant]
     Route: 048
  4. ARTANE [Concomitant]
     Route: 048
  5. ALFAROL [Concomitant]
     Route: 048

REACTIONS (1)
  - SUDDEN ONSET OF SLEEP [None]
